FAERS Safety Report 5660895-0 (Version None)
Quarter: 2008Q1

REPORT INFORMATION
  Report Type: 
  Country: None (occurrence: None)
  Receive Date: 20080311
  Receipt Date: 20080229
  Transmission Date: 20080703
  Serious: Yes (Hospitalization)
  Sender: FDA-Public Use
  Company Number: FR-JNJFOC-20080300210

PATIENT
  Age: 85 Year
  Sex: Female

DRUGS (6)
  1. OFLOCET [Suspect]
     Indication: URINARY TRACT INFECTION
     Route: 048
  2. LASILIX [Concomitant]
     Route: 065
  3. DIFFU K [Concomitant]
     Route: 065
  4. LEVOTHYROX [Concomitant]
     Indication: THYROIDECTOMY
     Route: 065
  5. PREVISCAN [Concomitant]
     Route: 065
  6. SINGULAIR [Concomitant]
     Indication: RESPIRATORY FAILURE
     Route: 065

REACTIONS (1)
  - ACUTE GENERALISED EXANTHEMATOUS PUSTULOSIS [None]
